FAERS Safety Report 5557759-X (Version None)
Quarter: 2007Q4

REPORT INFORMATION
  Report Type: 
  Country: None (occurrence: None)
  Receive Date: 20071214
  Receipt Date: 20071004
  Transmission Date: 20080405
  Serious: No
  Sender: FDA-Public Use
  Company Number: US-AMGEN-KDL243799

PATIENT
  Sex: Female
  Weight: 47.2 kg

DRUGS (6)
  1. ENBREL [Suspect]
     Indication: RHEUMATOID ARTHRITIS
     Route: 058
     Dates: start: 20070820, end: 20070918
  2. TREXALL [Suspect]
     Dates: start: 20061001
  3. PLAQUENIL [Concomitant]
     Route: 058
     Dates: start: 20070820, end: 20070915
  4. PREDNISONE [Concomitant]
  5. FOLIC ACID [Concomitant]
  6. VITAMIN CAP [Concomitant]

REACTIONS (4)
  - DRUG ERUPTION [None]
  - HERPES ZOSTER [None]
  - RASH MACULO-PAPULAR [None]
  - RHEUMATOID ARTHRITIS [None]
